FAERS Safety Report 16721647 (Version 1)
Quarter: 2019Q3

REPORT INFORMATION
  Report Type: Spontaneous
  Country: CL (occurrence: CL)
  Receive Date: 20190820
  Receipt Date: 20190820
  Transmission Date: 20191005
  Serious: Yes (Other)
  Sender: FDA-Public Use
  Company Number: CL-009507513-1908CHL005612

PATIENT
  Sex: Female

DRUGS (5)
  1. ZERBAXA [Suspect]
     Active Substance: CEFTOLOZANE SULFATE\TAZOBACTAM SODIUM
     Indication: PNEUMONIA
     Dosage: 450 MILLIGRAM, Q8H, 300 MG (CEFTOLOZANE  / 150 MG TAZOBACTAM) INFUSION, IN ONE HOUR ON SATURDAY
     Dates: start: 2019
  2. COLISTIN [Concomitant]
     Active Substance: COLISTIN
     Indication: PNEUMONIA
  3. MEROPENEM. [Concomitant]
     Active Substance: MEROPENEM
     Indication: PNEUMONIA
  4. MEROPENEM. [Concomitant]
     Active Substance: MEROPENEM
     Indication: SEPSIS
  5. COLISTIN [Concomitant]
     Active Substance: COLISTIN
     Indication: SEPSIS

REACTIONS (4)
  - Haemodynamic instability [Not Recovered/Not Resolved]
  - Inappropriate schedule of product administration [Unknown]
  - Incorrect dose administered [Unknown]
  - Haemorrhage [Not Recovered/Not Resolved]

NARRATIVE: CASE EVENT DATE: 2019
